FAERS Safety Report 24356451 (Version 1)
Quarter: 2024Q3

REPORT INFORMATION
  Report Type: Spontaneous
  Country: US (occurrence: US)
  Receive Date: 20240924
  Receipt Date: 20240924
  Transmission Date: 20241017
  Serious: No
  Sender: SCIEGEN
  Company Number: US-SCIEGENP-2024SCSPO00362

PATIENT
  Age: 65 Year
  Sex: Male
  Weight: 165 kg

DRUGS (1)
  1. NAPROXEN [Suspect]
     Active Substance: NAPROXEN
     Indication: Arthralgia
     Route: 065
     Dates: end: 20240827

REACTIONS (1)
  - Drug ineffective [Unknown]
